FAERS Safety Report 7459347-7 (Version None)
Quarter: 2011Q2

REPORT INFORMATION
  Report Type: 
  Country: None (occurrence: None)
  Receive Date: 20110505
  Receipt Date: 20110504
  Transmission Date: 20111010
  Serious: No
  Sender: FDA-Public Use
  Company Number: US-PFIZER INC-2011096261

PATIENT

DRUGS (1)
  1. VENLAFAXINE HCL [Suspect]
     Dosage: 75 MG, 1X/DAY

REACTIONS (2)
  - URTICARIA [None]
  - RASH [None]
